FAERS Safety Report 14753355 (Version 1)
Quarter: 2018Q2

REPORT INFORMATION
  Report Type: Spontaneous
  Country: US (occurrence: US)
  Receive Date: 20180412
  Receipt Date: 20180412
  Transmission Date: 20180711
  Serious: No
  Sender: FDA-Public Use
  Company Number: US-ALLERGAN-1713606US

PATIENT
  Sex: Female
  Weight: 61.22 kg

DRUGS (1)
  1. FEMRING [Suspect]
     Active Substance: ESTRADIOL ACETATE
     Indication: MENOPAUSAL SYMPTOMS
     Dosage: UNK
     Route: 067
     Dates: start: 20170104, end: 201703

REACTIONS (5)
  - Drug dose omission [Unknown]
  - Atrophic vulvovaginitis [Not Recovered/Not Resolved]
  - Product physical issue [Unknown]
  - Overdose [Unknown]
  - Emotional disorder [Unknown]
